FAERS Safety Report 12983567 (Version 2)
Quarter: 2016Q4

REPORT INFORMATION
  Report Type: Spontaneous
  Country: FR (occurrence: FR)
  Receive Date: 20161129
  Receipt Date: 20161209
  Transmission Date: 20170207
  Serious: Yes (Hospitalization, Other)
  Sender: FDA-Public Use
  Company Number: FR-SA-2016SA210843

PATIENT
  Age: 67 Year
  Sex: Male
  Weight: 105 kg

DRUGS (9)
  1. ESIDREX [Concomitant]
     Active Substance: HYDROCHLOROTHIAZIDE
     Dates: end: 20140530
  2. LANTUS [Concomitant]
     Active Substance: INSULIN GLARGINE
     Dates: start: 20131120, end: 20140530
  3. METFORMIN [Concomitant]
     Active Substance: METFORMIN HYDROCHLORIDE
     Dates: start: 20131121, end: 20140530
  4. JANUVIA [Concomitant]
     Active Substance: SITAGLIPTIN PHOSPHATE
     Dates: start: 20131124, end: 20140530
  5. THYROGEN [Suspect]
     Active Substance: THYROTROPIN ALFA
     Indication: THERAPEUTIC PROCEDURE
     Route: 065
     Dates: start: 20140526, end: 20140527
  6. LEVOTHYROX [Concomitant]
     Active Substance: LEVOTHYROXINE
     Dates: end: 20140530
  7. MAGNESIUM PIDOLATE [Concomitant]
     Active Substance: MAGNESIUM PIDOLATE
  8. PLAVIX [Concomitant]
     Active Substance: CLOPIDOGREL BISULFATE
     Dates: end: 20140530
  9. COVERSYL [Concomitant]
     Active Substance: PERINDOPRIL
     Dates: end: 20140530

REACTIONS (10)
  - Bone pain [Recovered/Resolved]
  - Epistaxis [Recovered/Resolved]
  - Protein urine present [Unknown]
  - Blood urine present [Unknown]
  - Pyrexia [Recovered/Resolved]
  - General physical health deterioration [Recovered/Resolved]
  - Back pain [Recovered/Resolved]
  - Osteonecrosis [Recovered/Resolved]
  - Vomiting [Recovered/Resolved]
  - Disease progression [Recovered/Resolved with Sequelae]

NARRATIVE: CASE EVENT DATE: 20140529
